FAERS Safety Report 7421570-5 (Version None)
Quarter: 2011Q2

REPORT INFORMATION
  Report Type: 
  Country: None (occurrence: None)
  Receive Date: 20110418
  Receipt Date: 20110406
  Transmission Date: 20111010
  Serious: Yes (Hospitalization)
  Sender: FDA-Public Use
  Company Number: PHHY2011BR29115

PATIENT
  Sex: Female
  Weight: 65 kg

DRUGS (9)
  1. HYDERGINE [Suspect]
     Indication: OXYGEN SUPPLEMENTATION
     Dosage: 6 MG, UNK
     Dates: start: 20100410
  2. LIPOSIC [Concomitant]
     Indication: GLAUCOMA
     Dosage: ONE DROP IN EACH EYE DAILY
  3. LIPOSIC [Concomitant]
     Indication: CATARACT
  4. OLCADIL [Concomitant]
     Indication: DEPRESSION
     Dosage: 2 MG, DAILY
     Route: 048
  5. METFORMIN [Concomitant]
     Indication: DIABETES MELLITUS
     Dosage: 500 MG, BID, AFTER THE LUNCH AND DINNER
     Route: 048
  6. TRISORB [Concomitant]
     Indication: GLAUCOMA
     Dosage: ONE DROP IN EACH EYE
  7. TRISORB [Concomitant]
     Indication: CATARACT
  8. HYDERGINE [Suspect]
     Dosage: 6 MG, AT NIGHT
     Dates: start: 20101110
  9. DIOVAN [Concomitant]
     Indication: HYPERTENSION
     Dosage: 160 MG, BID

REACTIONS (2)
  - SLEEP DISORDER [None]
  - TRANSIENT ISCHAEMIC ATTACK [None]
